FAERS Safety Report 23744057 (Version 1)
Quarter: 2024Q2

REPORT INFORMATION
  Report Type: Spontaneous
  Country: PL (occurrence: PL)
  Receive Date: 20240415
  Receipt Date: 20240415
  Transmission Date: 20240716
  Serious: Yes (Life-Threatening)
  Sender: FDA-Public Use
  Company Number: None

PATIENT
  Age: 82 Year
  Sex: Male
  Weight: 70 kg

DRUGS (6)
  1. SULFASALAZINE [Concomitant]
     Active Substance: SULFASALAZINE
     Route: 050
     Dates: start: 20240214
  2. HALOPERIDOL [Concomitant]
     Active Substance: HALOPERIDOL
     Route: 050
     Dates: start: 20240126
  3. JARDIANCE [Concomitant]
     Active Substance: EMPAGLIFLOZIN
     Route: 050
     Dates: start: 20240221
  4. FERRIC DERISOMALTOSE [Suspect]
     Active Substance: FERRIC DERISOMALTOSE
     Indication: Iron deficiency
     Route: 050
     Dates: start: 20240221, end: 20240221
  5. METOPROLOL [Concomitant]
     Active Substance: METOPROLOL
     Route: 050
     Dates: start: 20240127
  6. OMEPRAZOLE [Concomitant]
     Active Substance: OMEPRAZOLE
     Route: 050
     Dates: start: 20240126

REACTIONS (3)
  - Gastrointestinal haemorrhage [Recovered/Resolved]
  - Melaena [Recovered/Resolved]
  - Blood pressure decreased [Recovered/Resolved]

NARRATIVE: CASE EVENT DATE: 20240221
